FAERS Safety Report 22250888 (Version 1)
Quarter: 2023Q2

REPORT INFORMATION
  Report Type: Spontaneous
  Country: US (occurrence: None)
  Receive Date: 20230424
  Receipt Date: 20230424
  Transmission Date: 20230721
  Serious: Yes (Death)
  Sender: FDA-Public Use
  Company Number: None

PATIENT
  Age: 100 Year
  Sex: Male
  Weight: 67.13 kg

DRUGS (8)
  1. ABIRATERONE [Suspect]
     Active Substance: ABIRATERONE
     Indication: Prostate cancer
     Dosage: FREQUENCY : DAILY;?
     Route: 048
  2. ACETAMINOPHEN [Concomitant]
  3. ALENDRONATE [Concomitant]
  4. DOCUSATE [Concomitant]
  5. ELIQUIS [Concomitant]
     Active Substance: APIXABAN
  6. FINASTERIDE [Concomitant]
  7. PREDNISONE [Concomitant]
  8. PRESERVISION AREDS [Concomitant]

REACTIONS (1)
  - Death [None]

NARRATIVE: CASE EVENT DATE: 20230407
